FAERS Safety Report 21251384 (Version 4)
Quarter: 2023Q1

REPORT INFORMATION
  Report Type: Spontaneous
  Country: US (occurrence: US)
  Receive Date: 20220825
  Receipt Date: 20230222
  Transmission Date: 20230418
  Serious: No
  Sender: FDA-Public Use
  Company Number: US-GSK-US2022AMR121343

PATIENT
  Sex: Female

DRUGS (37)
  1. NUCALA [Suspect]
     Active Substance: MEPOLIZUMAB
     Indication: Product used for unknown indication
     Dosage: UNK
  2. NUCALA [Suspect]
     Active Substance: MEPOLIZUMAB
     Indication: Product used for unknown indication
     Dosage: UNK
  3. NUCALA [Suspect]
     Active Substance: MEPOLIZUMAB
  4. NUCALA [Suspect]
     Active Substance: MEPOLIZUMAB
     Indication: Product used for unknown indication
     Dosage: UNK
  5. NUCALA [Suspect]
     Active Substance: MEPOLIZUMAB
  6. NUCALA [Suspect]
     Active Substance: MEPOLIZUMAB
  7. NUCALA [Suspect]
     Active Substance: MEPOLIZUMAB
     Indication: Product used for unknown indication
     Dosage: UNK
  8. NUCALA [Suspect]
     Active Substance: MEPOLIZUMAB
  9. NUCALA [Suspect]
     Active Substance: MEPOLIZUMAB
  10. NUCALA [Suspect]
     Active Substance: MEPOLIZUMAB
  11. NUCALA [Suspect]
     Active Substance: MEPOLIZUMAB
     Indication: Product used for unknown indication
     Dosage: UNK
  12. NUCALA [Suspect]
     Active Substance: MEPOLIZUMAB
  13. NUCALA [Suspect]
     Active Substance: MEPOLIZUMAB
  14. NUCALA [Suspect]
     Active Substance: MEPOLIZUMAB
  15. NUCALA [Suspect]
     Active Substance: MEPOLIZUMAB
  16. NUCALA [Suspect]
     Active Substance: MEPOLIZUMAB
     Indication: Product used for unknown indication
     Dosage: UNK
  17. NUCALA [Suspect]
     Active Substance: MEPOLIZUMAB
  18. NUCALA [Suspect]
     Active Substance: MEPOLIZUMAB
  19. NUCALA [Suspect]
     Active Substance: MEPOLIZUMAB
  20. NUCALA [Suspect]
     Active Substance: MEPOLIZUMAB
  21. NUCALA [Suspect]
     Active Substance: MEPOLIZUMAB
  22. NUCALA [Suspect]
     Active Substance: MEPOLIZUMAB
     Indication: Product used for unknown indication
     Dosage: UNK
  23. NUCALA [Suspect]
     Active Substance: MEPOLIZUMAB
  24. NUCALA [Suspect]
     Active Substance: MEPOLIZUMAB
  25. NUCALA [Suspect]
     Active Substance: MEPOLIZUMAB
  26. NUCALA [Suspect]
     Active Substance: MEPOLIZUMAB
  27. NUCALA [Suspect]
     Active Substance: MEPOLIZUMAB
  28. NUCALA [Suspect]
     Active Substance: MEPOLIZUMAB
  29. NUCALA [Suspect]
     Active Substance: MEPOLIZUMAB
     Indication: Product used for unknown indication
     Dosage: UNK
  30. NUCALA [Suspect]
     Active Substance: MEPOLIZUMAB
  31. NUCALA [Suspect]
     Active Substance: MEPOLIZUMAB
  32. NUCALA [Suspect]
     Active Substance: MEPOLIZUMAB
  33. NUCALA [Suspect]
     Active Substance: MEPOLIZUMAB
  34. NUCALA [Suspect]
     Active Substance: MEPOLIZUMAB
  35. NUCALA [Suspect]
     Active Substance: MEPOLIZUMAB
  36. NUCALA [Suspect]
     Active Substance: MEPOLIZUMAB
  37. NUCALA [Concomitant]
     Active Substance: MEPOLIZUMAB
     Indication: Product used for unknown indication
     Dosage: UNK

REACTIONS (4)
  - Product storage error [Unknown]
  - Product dose omission issue [Unknown]
  - Accidental exposure to product [Unknown]
  - Product complaint [Unknown]
